FAERS Safety Report 21172605 (Version 2)
Quarter: 2022Q3

REPORT INFORMATION
  Report Type: Spontaneous
  Country: US (occurrence: US)
  Receive Date: 20220804
  Receipt Date: 20220823
  Transmission Date: 20221026
  Serious: No
  Sender: FDA-Public Use
  Company Number: US-BIOGEN-2022BI01144643

PATIENT
  Age: 43 Year
  Sex: Female

DRUGS (1)
  1. VUMERITY [Suspect]
     Active Substance: DIROXIMEL FUMARATE
     Indication: Multiple sclerosis
     Route: 050

REACTIONS (6)
  - Central nervous system lesion [Unknown]
  - Vision blurred [Unknown]
  - Depression [Unknown]
  - Nephrolithiasis [Unknown]
  - Diarrhoea [Unknown]
  - Nausea [Unknown]

NARRATIVE: CASE EVENT DATE: 20220124
